FAERS Safety Report 7461827-5 (Version None)
Quarter: 2011Q2

REPORT INFORMATION
  Report Type: 
  Country: None (occurrence: None)
  Receive Date: 20110506
  Receipt Date: 20110321
  Transmission Date: 20111010
  Serious: Yes (Hospitalization, Other)
  Sender: FDA-Public Use
  Company Number: US-BAYER-201040717NA

PATIENT
  Age: 31 Year
  Sex: Female
  Weight: 90.703 kg

DRUGS (11)
  1. SEASONALE [Concomitant]
     Dosage: UNK
     Dates: start: 20070126
  2. XANAX [Concomitant]
     Indication: ANXIETY
     Dosage: UNK
     Dates: start: 20060101, end: 20070101
  3. ANTIBIOTICS [Concomitant]
     Dosage: UNK UNK, PRN
  4. YAZ [Suspect]
     Indication: CONTRACEPTION
     Dosage: UNK
     Dates: start: 19960101, end: 19990101
  5. CONTRACEPTIVES NOS [Concomitant]
     Dosage: UNK
     Dates: start: 20000101, end: 20090101
  6. IBUPROFEN [Concomitant]
     Dosage: UNK UNK, PRN
  7. KLONOPIN [Concomitant]
     Indication: ANXIETY
     Dosage: UNK
     Dates: start: 20060101, end: 20070101
  8. YAZ [Suspect]
     Dosage: UNK
     Dates: start: 20091001
  9. YAZ [Suspect]
     Indication: PREMENSTRUAL SYNDROME
     Dosage: UNK
     Dates: start: 20070410, end: 20080701
  10. TYLENOL 1 [Concomitant]
     Dosage: UNK UNK, PRN
  11. AYGESTIN [Concomitant]

REACTIONS (6)
  - DYSFUNCTIONAL UTERINE BLEEDING [None]
  - ANXIETY [None]
  - ENDOMETRIAL ABLATION [None]
  - INFERTILITY [None]
  - COAGULOPATHY [None]
  - MENSTRUAL DISORDER [None]
